FAERS Safety Report 23709346 (Version 1)
Quarter: 2024Q2

REPORT INFORMATION
  Report Type: Spontaneous
  Country: CA (occurrence: CA)
  Receive Date: 20240404
  Receipt Date: 20240404
  Transmission Date: 20240716
  Serious: Yes (Hospitalization)
  Sender: FDA-Public Use
  Company Number: CA-TEVA-VS-3178762

PATIENT
  Age: 83 Year
  Sex: Female

DRUGS (2)
  1. NAPROXEN [Suspect]
     Active Substance: NAPROXEN
     Indication: Product used for unknown indication
     Dosage: TEVA
     Route: 065
  2. RAMIPRIL [Suspect]
     Active Substance: RAMIPRIL
     Indication: Product used for unknown indication
     Dosage: TEVA
     Route: 065

REACTIONS (4)
  - Acute kidney injury [Recovering/Resolving]
  - Drug interaction [Recovering/Resolving]
  - Hyperkalaemia [Recovering/Resolving]
  - Renal failure [Recovering/Resolving]
